FAERS Safety Report 10545253 (Version 2)
Quarter: 2014Q4

REPORT INFORMATION
  Report Type: Spontaneous
  Country: GB (occurrence: GB)
  Receive Date: 20141027
  Receipt Date: 20141028
  Transmission Date: 20150529
  Serious: Yes (Other)
  Sender: FDA-Public Use
  Company Number: GB-TEVA-517189ISR

PATIENT
  Sex: Female

DRUGS (2)
  1. CARBOPLATIN. [Suspect]
     Active Substance: CARBOPLATIN
     Indication: OVARIAN CANCER RECURRENT
     Route: 042
  2. DECITABINE. [Suspect]
     Active Substance: DECITABINE
     Dosage: 90 MG M2/ 45 MG M2 AS A 6 HOUR IV INFUSION ON DAY 1 FOR PATIENTS IN ARM B
     Route: 042

REACTIONS (18)
  - Constipation [Unknown]
  - Fatigue [Unknown]
  - Hypophosphataemia [Unknown]
  - Vomiting [Unknown]
  - Disease progression [Unknown]
  - Leukopenia [Unknown]
  - Hyperglycaemia [Unknown]
  - Neutrophil count abnormal [Unknown]
  - Haemoglobin abnormal [Unknown]
  - Hypersensitivity [Unknown]
  - Dyspnoea [Unknown]
  - Nausea [Unknown]
  - Lymphopenia [Unknown]
  - Hypoalbuminaemia [Unknown]
  - Aspartate aminotransferase abnormal [Unknown]
  - Thrombocytopenia [Unknown]
  - Gamma-glutamyltransferase abnormal [Unknown]
  - Pain [Unknown]
